FAERS Safety Report 7232887-1 (Version None)
Quarter: 2011Q1

REPORT INFORMATION
  Report Type: 
  Country: None (occurrence: None)
  Receive Date: 20110106
  Receipt Date: 20101224
  Transmission Date: 20110831
  Serious: Yes (Other)
  Sender: FDA-Public Use
  Company Number: GB-1184226

PATIENT
  Age: 49 Year
  Sex: Female

DRUGS (2)
  1. MAXIDEX [Suspect]
     Indication: UVEITIS
     Dosage: Q1H FOR FEW DAYS; THEN Q2H FOR FEW DAYS; THEN TAPERING DOWN
     Dates: start: 20080201
  2. PRED (PREDNISOLONE ACETATE) [Concomitant]

REACTIONS (7)
  - RETINAL SCAR [None]
  - VISUAL ACUITY REDUCED [None]
  - IMPAIRED WORK ABILITY [None]
  - ACTIVITIES OF DAILY LIVING IMPAIRED [None]
  - NAUSEA [None]
  - MEMORY IMPAIRMENT [None]
  - FATIGUE [None]
